FAERS Safety Report 11910238 (Version 1)
Quarter: 2016Q1

REPORT INFORMATION
  Report Type: Spontaneous
  Country: US (occurrence: US)
  Receive Date: 20160112
  Receipt Date: 20160112
  Transmission Date: 20160526
  Serious: Yes (Other)
  Sender: FDA-Public Use
  Company Number: US-PROCTER+GAMBLE-GS15047480

PATIENT
  Age: 55 Year
  Sex: Male

DRUGS (1)
  1. VICKS VAPORUB [Suspect]
     Active Substance: CAMPHOR (SYNTHETIC)\EUCALYPTUS OIL\MENTHOL
     Dosage: 20 YEARS
     Route: 045

REACTIONS (9)
  - Condition aggravated [Unknown]
  - Breath sounds abnormal [Unknown]
  - Rales [Unknown]
  - Product use issue [Unknown]
  - Pneumonia lipoid [Unknown]
  - Cough [Unknown]
  - Exposure via inhalation [Unknown]
  - Clubbing [Unknown]
  - Oxygen saturation decreased [Unknown]
